FAERS Safety Report 13237110 (Version 1)
Quarter: 2017Q1

REPORT INFORMATION
  Report Type: Spontaneous
  Country: US (occurrence: US)
  Receive Date: 20170215
  Receipt Date: 20170215
  Transmission Date: 20170428
  Serious: Yes (Life-Threatening, Hospitalization, Other)
  Sender: FDA-Public Use
  Company Number: US-MYLANLABS-2017M1008081

PATIENT

DRUGS (1)
  1. BACLOFEN. [Suspect]
     Active Substance: BACLOFEN
     Indication: MUSCLE SPASTICITY
     Dosage: INITIAL DOSE NOT STATED; 1395.8 MCG/DAY
     Route: 037

REACTIONS (9)
  - Cardiogenic shock [Recovered/Resolved]
  - Drug withdrawal syndrome [Recovered/Resolved]
  - Hypoxia [Recovered/Resolved]
  - Toxicity to various agents [Recovered/Resolved]
  - Pulmonary oedema [Recovered/Resolved]
  - Hypotension [Recovered/Resolved]
  - Lethargy [Recovered/Resolved]
  - Cardiomyopathy [Recovered/Resolved]
  - Hypothermia [Recovered/Resolved]
